FAERS Safety Report 8266961 (Version 9)
Quarter: 2013Q1

REPORT INFORMATION
  Report Type: Report from Study
  Country: BR (occurrence: BR)
  Receive Date: 20111129
  Receipt Date: 20130111
  Transmission Date: 20140127
  Serious: Yes (Death, Other)
  Sender: FDA-Public Use
  Company Number: BR-ROCHE-1014422

PATIENT
  Age: 52 Year
  Sex: Female
  Weight: 74 kg

DRUGS (7)
  1. RIBAVIRIN [Suspect]
     Indication: HEPATITIS C
     Route: 048
     Dates: start: 20110520, end: 20111111
  2. PEGINTERFERON ALFA-2B [Suspect]
     Indication: HEPATITIS C
     Route: 058
     Dates: start: 20110520, end: 20111111
  3. PARACETAMOL [Concomitant]
     Indication: PAIN
     Dosage: IRREGULAR
     Route: 048
     Dates: start: 20110606, end: 20111111
  4. LOSARTAN [Concomitant]
     Indication: HYPERTENSION
     Route: 048
     Dates: start: 2009, end: 20111111
  5. METFORMIN [Concomitant]
     Indication: DIABETES MELLITUS
     Route: 048
     Dates: start: 2009, end: 20111111
  6. PROPANOLOLI HYDROCHLORIDUM [Concomitant]
     Indication: HYPERTENSION
     Route: 048
     Dates: start: 2009, end: 20111111
  7. EPOETIN ALFA [Concomitant]
     Indication: ANAEMIA
     Dosage: DOSE: 10000 UI
     Route: 058
     Dates: start: 20110919, end: 20111111

REACTIONS (4)
  - Gastrointestinal haemorrhage [Fatal]
  - Motor dysfunction [Not Recovered/Not Resolved]
  - Lethargy [Not Recovered/Not Resolved]
  - Hypertension [Not Recovered/Not Resolved]
